FAERS Safety Report 10518386 (Version 1)
Quarter: 2014Q4

REPORT INFORMATION
  Report Type: Spontaneous
  Country: US (occurrence: None)
  Receive Date: 20141014
  Receipt Date: 20141014
  Transmission Date: 20150528
  Serious: No
  Sender: FDA-Public Use
  Company Number: None

PATIENT
  Age: 54 Year
  Sex: Male
  Weight: 111.6 kg

DRUGS (1)
  1. FERUMOXYTOL [Suspect]
     Active Substance: FERUMOXYTOL
     Indication: IRON DEFICIENCY ANAEMIA
     Route: 042
     Dates: start: 20140912, end: 20140917

REACTIONS (1)
  - Sneezing [None]

NARRATIVE: CASE EVENT DATE: 20140912
